FAERS Safety Report 7308025-3 (Version None)
Quarter: 2011Q1

REPORT INFORMATION
  Report Type: 
  Country: None (occurrence: None)
  Receive Date: 20110223
  Receipt Date: 20100601
  Transmission Date: 20110831
  Serious: Yes (Hospitalization, Other)
  Sender: FDA-Public Use
  Company Number: US-BAYER-200937698NA

PATIENT
  Sex: Female
  Weight: 97 kg

DRUGS (8)
  1. SERTRALINE HYDROCHLORIDE [Concomitant]
     Indication: DEPRESSION
     Dosage: 50 MG, UNK
     Route: 048
     Dates: start: 20070106
  2. FLUOXETINE [Concomitant]
     Dosage: 10 MG, UNK
     Route: 048
  3. YASMIN [Suspect]
     Indication: CONTRACEPTION
     Dates: start: 20040101, end: 20060201
  4. METOCLOPRAMIDE HCL [Concomitant]
     Dosage: 10 MG, UNK
     Route: 048
  5. ACETAMINOPHEN [Concomitant]
     Route: 048
  6. UNCODEABLE ^UNCLASSIFIABLE^ [Concomitant]
     Dosage: 100 MG, UNK
     Route: 048
  7. LORAZEPAM [Concomitant]
     Dosage: 0.5 MG, UNK
     Route: 048
  8. CITALOPRAM [Concomitant]
     Dosage: 10 MG, UNK
     Route: 048

REACTIONS (5)
  - CHOLECYSTITIS CHRONIC [None]
  - CHOLELITHIASIS [None]
  - GALLBLADDER CHOLESTEROLOSIS [None]
  - PAIN [None]
  - PANCREATITIS [None]
